FAERS Safety Report 16855151 (Version 1)
Quarter: 2019Q3

REPORT INFORMATION
  Report Type: Spontaneous
  Country: AU (occurrence: AU)
  Receive Date: 20190926
  Receipt Date: 20190926
  Transmission Date: 20191005
  Serious: No
  Sender: FDA-Public Use
  Company Number: AU-BEH-2019107038

PATIENT
  Sex: Male

DRUGS (2)
  1. PRIVIGEN [Suspect]
     Active Substance: HUMAN IMMUNOGLOBULIN G
     Route: 042
  2. DEXTROSE. [Concomitant]
     Active Substance: DEXTROSE
     Dosage: UNK

REACTIONS (2)
  - No adverse event [Unknown]
  - Product administration error [Unknown]
